FAERS Safety Report 17339608 (Version 1)
Quarter: 2020Q1

REPORT INFORMATION
  Report Type: Report from Study
  Country: IT (occurrence: IT)
  Receive Date: 20200129
  Receipt Date: 20200129
  Transmission Date: 20200409
  Serious: Yes (Other)
  Sender: FDA-Public Use
  Company Number: IT-MYLANLABS-2020M1009920

PATIENT
  Age: 77 Year
  Sex: Female

DRUGS (5)
  1. PACLITAXEL. [Suspect]
     Active Substance: PACLITAXEL
     Indication: UTERINE CANCER
     Dosage: 300 MILLIGRAM, TOTAL
     Route: 042
     Dates: start: 20191111, end: 20191111
  2. BROMAZEPAM [Concomitant]
     Active Substance: BROMAZEPAM
     Dosage: UNK
  3. PAROXETINE. [Concomitant]
     Active Substance: PAROXETINE
     Dosage: UNK
  4. BLOPRESS [Concomitant]
     Active Substance: CANDESARTAN CILEXETIL
     Dosage: UNK
  5. CARBOPLATIN. [Concomitant]
     Active Substance: CARBOPLATIN
     Indication: UTERINE CANCER
     Dosage: 550 MILLIGRAM
     Route: 042
     Dates: start: 20191111, end: 20191111

REACTIONS (5)
  - Dyspnoea [Recovered/Resolved]
  - Erythema [Recovered/Resolved]
  - Cyanosis [Recovered/Resolved]
  - Back pain [Recovered/Resolved]
  - Hypersensitivity [Recovered/Resolved]

NARRATIVE: CASE EVENT DATE: 20191111
